FAERS Safety Report 7550939-3 (Version None)
Quarter: 2011Q2

REPORT INFORMATION
  Report Type: 
  Country: None (occurrence: None)
  Receive Date: 20110616
  Receipt Date: 20110603
  Transmission Date: 20111010
  Serious: Yes (Hospitalization)
  Sender: FDA-Public Use
  Company Number: US-CELGENEUS-AX252-10-0516

PATIENT
  Sex: Male

DRUGS (3)
  1. ABRAXANE [Suspect]
     Route: 065
     Dates: start: 20100802, end: 20100914
  2. ERBITUX [Suspect]
     Route: 065
     Dates: start: 20100802, end: 20100914
  3. RADIATION THERAPY [Suspect]
     Dates: start: 20100726

REACTIONS (3)
  - SINUS TACHYCARDIA [None]
  - MUCOSAL INFLAMMATION [None]
  - ODYNOPHAGIA [None]
